FAERS Safety Report 16107852 (Version 2)
Quarter: 2019Q1

REPORT INFORMATION
  Report Type: Spontaneous
  Country: CN (occurrence: CN)
  Receive Date: 20190322
  Receipt Date: 20190328
  Transmission Date: 20190418
  Serious: Yes (Death, Hospitalization)
  Sender: FDA-Public Use
  Company Number: CN-PFIZER INC-2019104533

PATIENT
  Sex: Female

DRUGS (2)
  1. FULVESTRANT. [Suspect]
     Active Substance: FULVESTRANT
     Indication: BREAST CANCER
     Dosage: UNK, CYCLIC
  2. IBRANCE [Suspect]
     Active Substance: PALBOCICLIB
     Indication: BREAST CANCER
     Dosage: UNK, CYCLIC

REACTIONS (5)
  - Respiratory failure [Fatal]
  - Pulmonary embolism [Fatal]
  - Pneumonitis [Unknown]
  - Neoplasm progression [Unknown]
  - Cardiac failure [Fatal]

NARRATIVE: CASE EVENT DATE: 20190320
